FAERS Safety Report 15670509 (Version 5)
Quarter: 2023Q2

REPORT INFORMATION
  Report Type: Spontaneous
  Country: JP (occurrence: None)
  Receive Date: 20181129
  Receipt Date: 20230519
  Transmission Date: 20230721
  Serious: Yes (Death)
  Sender: FDA-Public Use
  Company Number: 2018SF54516

PATIENT
  Age: 90 Year
  Sex: Male
  Weight: 46.1 kg

DRUGS (10)
  1. IRESSA [Suspect]
     Active Substance: GEFITINIB
     Indication: Lung adenocarcinoma
     Route: 048
  2. IRESSA [Suspect]
     Active Substance: GEFITINIB
     Indication: Lung adenocarcinoma
     Route: 048
  3. ACARBOSE [Concomitant]
     Active Substance: ACARBOSE
     Dosage: UNKNOWN
     Route: 048
  4. CILOSTAZOL [Concomitant]
     Active Substance: CILOSTAZOL
     Dosage: UNKNOWN
     Route: 048
  5. SENNOSIDES [Concomitant]
     Active Substance: SENNOSIDES
     Dosage: UNKNOWN
     Route: 048
  6. VONOPRAZAN FUMARATE [Concomitant]
     Active Substance: VONOPRAZAN FUMARATE
     Dosage: UNKNOWN
     Route: 048
  7. TENELIGLIPTIN HYDROBROMIDE HYDRATE [Concomitant]
     Active Substance: TENELIGLIPTIN HYDROBROMIDE HYDRATE
     Dosage: UNKNOWN
     Route: 048
  8. BETAHISTINE MESILATE [Concomitant]
     Active Substance: BETAHISTINE MESILATE
     Dosage: UNKNOWN
     Route: 048
  9. SILODOSIN [Concomitant]
     Active Substance: SILODOSIN
     Dosage: UNKNOWN
     Route: 048
  10. MAGNESIUM OXIDE [Concomitant]
     Active Substance: MAGNESIUM OXIDE
     Dosage: UNKNOWN
     Route: 048

REACTIONS (3)
  - B-cell lymphoma [Fatal]
  - Primary effusion lymphoma [Fatal]
  - Interstitial lung disease [Fatal]
